FAERS Safety Report 9699092 (Version 1)
Quarter: 2013Q4

REPORT INFORMATION
  Report Type: Report from Study
  Country: BR (occurrence: BR)
  Receive Date: 20131120
  Receipt Date: 20131120
  Transmission Date: 20140711
  Serious: Yes (Death, Hospitalization, Other)
  Sender: FDA-Public Use
  Company Number: PHHY2013BR131663

PATIENT
  Age: 70 Year
  Sex: Female
  Weight: 115 kg

DRUGS (11)
  1. GALVUS MET [Suspect]
     Indication: DIABETES MELLITUS
     Dosage: 1 DF (1000MG METF+50 MG VILD), BID
     Route: 048
     Dates: start: 201011, end: 2011
  2. SIMVASTATIN [Suspect]
     Dosage: 20 MG, UNK
     Dates: start: 1996
  3. ZYLORIC [Suspect]
     Indication: BLOOD URIC ACID ABNORMAL
     Dosage: 300 MG, UNK
     Dates: start: 1996
  4. ZYLORIC [Suspect]
     Dosage: 100 MG, DAILY
  5. VASOPRIL [Suspect]
     Indication: HYPERTENSION
     Dosage: 1 DF, DAILY
     Dates: start: 1996
  6. AAS [Suspect]
     Indication: CARDIOVASCULAR INSUFFICIENCY
     Dosage: 1 DF, DAILY
  7. ATORVASTATIN [Suspect]
     Indication: BLOOD CHOLESTEROL ABNORMAL
     Dosage: UNK UKN, UNK
  8. GALANTAMINE HYDROBROMIDE [Suspect]
     Dosage: UNK UKN, 5 TIMES DAILY
  9. PAMELOR [Concomitant]
     Dosage: 10 MG, DAILY OR AT NIGHT TO SLEEP (AS REPORTED)
  10. MONOCORDIL [Concomitant]
     Indication: CARDIAC DISORDER
     Dosage: 20 MG, UNK
  11. MONOCORDIL [Concomitant]
     Dosage: 40 MG, UNK
     Dates: end: 2011

REACTIONS (12)
  - Diabetes mellitus [Fatal]
  - Cardiac failure [Fatal]
  - Lung disorder [Fatal]
  - Obesity [Fatal]
  - Septic shock [Fatal]
  - Pneumonia bacterial [Fatal]
  - Anaemia [Unknown]
  - Cardiac disorder [Unknown]
  - Blood glucose fluctuation [Unknown]
  - Blindness unilateral [Unknown]
  - Impaired self-care [Unknown]
  - Depression [Unknown]
